FAERS Safety Report 4487860-3 (Version None)
Quarter: 2004Q4

REPORT INFORMATION
  Report Type: 
  Country: None (occurrence: None)
  Receive Date: 20041028
  Receipt Date: 20040924
  Transmission Date: 20050328
  Serious: Yes (Death, Life-Threatening, Other)
  Sender: FDA-Public Use
  Company Number: JP-BRISTOL-MYERS SQUIBB COMPANY-12713558

PATIENT
  Age: 59 Year
  Sex: Male

DRUGS (4)
  1. ENDOXAN [Interacting]
     Indication: STEM CELL TRANSPLANT
     Dates: start: 20030901, end: 20030101
  2. CARBOPLATIN [Suspect]
     Indication: STEM CELL TRANSPLANT
     Dates: start: 20030901, end: 20030101
  3. CYTARABINE [Interacting]
     Indication: STEM CELL TRANSPLANT
     Dates: start: 20030901, end: 20030101
  4. CYMERIN [Suspect]
     Indication: STEM CELL TRANSPLANT
     Route: 042
     Dates: start: 20030901, end: 20030101

REACTIONS (12)
  - ATRIAL FIBRILLATION [None]
  - CARDIAC ARREST [None]
  - CARDIAC DISORDER [None]
  - CARDIAC FAILURE ACUTE [None]
  - CARDIOMYOPATHY [None]
  - DRUG INTERACTION [None]
  - HEPATIC ATROPHY [None]
  - HEPATIC NECROSIS [None]
  - PERICARDIAL EFFUSION [None]
  - PETECHIAE [None]
  - STEM CELL TRANSPLANT [None]
  - VENTRICULAR HYPOKINESIA [None]
